FAERS Safety Report 6446402-3 (Version None)
Quarter: 2009Q4

REPORT INFORMATION
  Report Type: 
  Country: None (occurrence: None)
  Receive Date: 20091119
  Receipt Date: 20091110
  Transmission Date: 20100525
  Serious: Yes (Hospitalization)
  Sender: FDA-Public Use
  Company Number: US-ASTRAZENECA-2009SE25665

PATIENT
  Sex: Male
  Weight: 77.1 kg

DRUGS (4)
  1. NEXIUM [Suspect]
     Indication: EROSIVE OESOPHAGITIS
     Route: 048
     Dates: start: 20060101
  2. MARINOL [Concomitant]
  3. NADOLOL [Concomitant]
  4. ZOLOFT [Concomitant]

REACTIONS (2)
  - DRUG DOSE OMISSION [None]
  - GASTRIC HAEMORRHAGE [None]
